FAERS Safety Report 20724911 (Version 3)
Quarter: 2022Q3

REPORT INFORMATION
  Report Type: Spontaneous
  Country: JP (occurrence: JP)
  Receive Date: 20220419
  Receipt Date: 20220812
  Transmission Date: 20221027
  Serious: No
  Sender: FDA-Public Use
  Company Number: JP-GLAXOSMITHKLINE-JP2022JPN065779

PATIENT

DRUGS (10)
  1. SOTROVIMAB [Suspect]
     Active Substance: SOTROVIMAB
     Indication: COVID-19
     Dosage: 500 MG PER DAY
     Dates: start: 20220411, end: 20220411
  2. SOTROVIMAB [Suspect]
     Active Substance: SOTROVIMAB
     Indication: SARS-CoV-2 test positive
  3. FLUTICASONE FUROATE [Suspect]
     Active Substance: FLUTICASONE FUROATE
     Indication: Seasonal allergy
     Dosage: UNK, QD, BOTH NOSTRIL
     Route: 045
  4. MOMETASONE FUROATE [Suspect]
     Active Substance: MOMETASONE FUROATE
     Indication: Seasonal allergy
     Dosage: QD, 2 SPRAYS PER DOSE
     Route: 045
     Dates: start: 20220411, end: 20220414
  5. LEVOCABASTINE HYDROCHLORIDE [Suspect]
     Active Substance: LEVOCABASTINE HYDROCHLORIDE
     Indication: Seasonal allergy
     Dosage: BOTH EYES, QID
     Route: 047
     Dates: start: 20220411, end: 20220415
  6. SODIUM PICOSULFATE [Suspect]
     Active Substance: SODIUM PICOSULFATE
     Indication: Constipation
     Dosage: 15 DROPS AT CONSTIPATION
     Route: 048
     Dates: start: 20220412, end: 20220412
  7. RITODRINE HYDROCHLORIDE [Suspect]
     Active Substance: RITODRINE HYDROCHLORIDE
     Indication: Abdominal distension
     Dosage: 15 MG,3 TABLETS PERDAY
     Route: 048
     Dates: start: 20220414, end: 20220415
  8. CALONAL [Suspect]
     Active Substance: ACETAMINOPHEN
     Indication: Pyrexia
     Dosage: 400 MG, 2 TABLETS AT PYREXIA
     Route: 048
     Dates: start: 20220411, end: 20220411
  9. EPINASTINE HYDROCHLORIDE [Suspect]
     Active Substance: EPINASTINE HYDROCHLORIDE
     Indication: Seasonal allergy
     Dosage: BID, BOTH EYES
     Route: 047
  10. ACITAZANOLAST [Suspect]
     Active Substance: ACITAZANOLAST
     Indication: Seasonal allergy
     Dosage: QID, BOTH EYES
     Route: 047

REACTIONS (2)
  - Caesarean section [Unknown]
  - Exposure during pregnancy [Unknown]

NARRATIVE: CASE EVENT DATE: 20220617
